FAERS Safety Report 25406313 (Version 4)
Quarter: 2025Q3

REPORT INFORMATION
  Report Type: Report from Study
  Country: US (occurrence: US)
  Receive Date: 20250606
  Receipt Date: 20250828
  Transmission Date: 20251020
  Serious: Yes (Hospitalization, Other)
  Sender: BIOGEN
  Company Number: US-BIOGEN-2025BI01303053

PATIENT
  Sex: Female

DRUGS (2)
  1. TYSABRI [Suspect]
     Active Substance: NATALIZUMAB
     Indication: Multiple sclerosis
     Route: 050
     Dates: start: 20201110, end: 20250421
  2. ATORVASTATIN [Suspect]
     Active Substance: ATORVASTATIN
     Indication: Product used for unknown indication
     Route: 050

REACTIONS (8)
  - Kidney infection [Unknown]
  - Chest pain [Unknown]
  - Seizure [Unknown]
  - Feeling abnormal [Unknown]
  - Loss of consciousness [Recovered/Resolved]
  - Aphasia [Unknown]
  - Hepatic enzyme increased [Not Recovered/Not Resolved]
  - Urinary tract infection [Unknown]

NARRATIVE: CASE EVENT DATE: 20250101
